FAERS Safety Report 25952752 (Version 1)
Quarter: 2025Q4

REPORT INFORMATION
  Report Type: Spontaneous
  Country: US (occurrence: None)
  Receive Date: 20251022
  Receipt Date: 20251022
  Transmission Date: 20260118
  Serious: Yes (Other)
  Sender: FDA-CTU
  Company Number: None

PATIENT
  Age: 77 Year
  Sex: Female
  Weight: 87.75 kg

DRUGS (1)
  1. KISUNLA [Suspect]
     Active Substance: DONANEMAB-AZBT
     Indication: Dementia Alzheimer^s type
     Route: 041
     Dates: start: 20251016, end: 20251016

REACTIONS (5)
  - Infusion related reaction [None]
  - Dyspnoea [None]
  - Headache [None]
  - Abdominal discomfort [None]
  - Cough [None]

NARRATIVE: CASE EVENT DATE: 20251016
